FAERS Safety Report 10907712 (Version 1)
Quarter: 2015Q1

REPORT INFORMATION
  Report Type: Spontaneous
  Country: US (occurrence: US)
  Receive Date: 20150312
  Receipt Date: 20150312
  Transmission Date: 20150721
  Serious: No
  Sender: FDA-Public Use
  Company Number: US-INCYTE CORPORATION-2014IN003469

PATIENT
  Age: 72 Year
  Sex: Male

DRUGS (19)
  1. CHOLECALCIFEROL [Concomitant]
     Active Substance: CHOLECALCIFEROL
     Dosage: 2 UNITS , DAILY
     Route: 048
  2. JAKAFI [Suspect]
     Active Substance: RUXOLITINIB
     Dosage: 25 MG, MORNING AND NIGHT FOR 3 DAYS
     Route: 048
  3. JAKAFI [Suspect]
     Active Substance: RUXOLITINIB
     Dosage: 25 MG ONCE A DAY FOR7 DAYS
     Route: 048
  4. CLARITIN [Concomitant]
     Active Substance: LORATADINE
     Dosage: 10 MG, AS NEEDED
     Route: 048
  5. JAKAFI [Suspect]
     Active Substance: RUXOLITINIB
     Dosage: 25 MG, QD FOR ONE WEEK
     Route: 048
     Dates: start: 201411
  6. JAKAFI [Suspect]
     Active Substance: RUXOLITINIB
     Dosage: 20 MG MORNING AND 20 MG NIGHT FOR 4 DAYS
     Route: 048
  7. JAKAFI [Suspect]
     Active Substance: RUXOLITINIB
     Dosage: 25 MG MORNING AND 20 MG NIGHT FOR 4 DAYS
     Route: 048
  8. JAKAFI [Suspect]
     Active Substance: RUXOLITINIB
     Dosage: 20 MG EVERY OTHER DAY FOR 7 DOSES
     Route: 048
  9. BACTROBAN                          /00753901/ [Concomitant]
     Dosage: 2 % OINTMENT, DAILY, AS NEEDED
     Route: 061
  10. JAKAFI [Suspect]
     Active Substance: RUXOLITINIB
     Indication: MYELOFIBROSIS
     Dosage: 25 MG, BID
     Route: 048
     Dates: start: 20140414, end: 201411
  11. JAKAFI [Suspect]
     Active Substance: RUXOLITINIB
     Dosage: 20 MG ONCE A DAY FOR 7 DAYS
     Route: 048
  12. FISH OIL [Concomitant]
     Active Substance: FISH OIL
     Dosage: 1000 MG (2 TABS), QD
     Route: 048
  13. IBUPROFEN. [Concomitant]
     Active Substance: IBUPROFEN
     Dosage: 400 MG, AS NEEDED
     Route: 048
  14. PROSCAR [Concomitant]
     Active Substance: FINASTERIDE
     Dosage: 5 MG, QD
     Route: 048
  15. FLAXSEED [Concomitant]
     Active Substance: FLAX SEED
     Dosage: 1400 MG, QD
     Route: 048
  16. PROZAC [Concomitant]
     Active Substance: FLUOXETINE HYDROCHLORIDE
     Dosage: 20 MG, QD
     Route: 048
  17. HYDREA [Concomitant]
     Active Substance: HYDROXYUREA
     Dosage: 500 MG, QD
     Route: 048
     Dates: start: 20141113
  18. HYDREA [Concomitant]
     Active Substance: HYDROXYUREA
     Dosage: 500 MG, QD
     Route: 048
     Dates: start: 20140401
  19. FLOMAX [Concomitant]
     Active Substance: TAMSULOSIN HYDROCHLORIDE
     Dosage: 0.4 MG, QD (30 MIN AFTER A MEAL)
     Route: 048

REACTIONS (9)
  - Pyrexia [Unknown]
  - Treatment failure [Unknown]
  - Pruritus [Unknown]
  - Diarrhoea [Unknown]
  - Malaise [Unknown]
  - Dyspnoea [Unknown]
  - Fatigue [Unknown]
  - Hyperhidrosis [Unknown]
  - Decreased appetite [Unknown]

NARRATIVE: CASE EVENT DATE: 20141106
